FAERS Safety Report 15041372 (Version 1)
Quarter: 2018Q2

REPORT INFORMATION
  Report Type: Spontaneous
  Country: US (occurrence: US)
  Receive Date: 20180621
  Receipt Date: 20180621
  Transmission Date: 20180711
  Serious: Yes (Other)
  Sender: FDA-Public Use
  Company Number: US-CIPLA (EU) LIMITED-2018US19194

PATIENT

DRUGS (9)
  1. CARBOPLATIN. [Suspect]
     Active Substance: CARBOPLATIN
     Indication: ASTROCYTOMA, LOW GRADE
     Dosage: UNK
     Route: 065
  2. VINCRISTINE [Suspect]
     Active Substance: VINCRISTINE
     Indication: ASTROCYTOMA, LOW GRADE
     Dosage: UNK
     Route: 065
  3. BEVACIZUMAB. [Suspect]
     Active Substance: BEVACIZUMAB
     Indication: ASTROCYTOMA, LOW GRADE
     Dosage: UNK
     Route: 065
  4. CISPLATIN. [Suspect]
     Active Substance: CISPLATIN
     Indication: ASTROCYTOMA, LOW GRADE
     Dosage: UNK
     Route: 065
  5. TEMOZOLOMIDE. [Suspect]
     Active Substance: TEMOZOLOMIDE
     Indication: ASTROCYTOMA, LOW GRADE
     Dosage: UNK
     Route: 065
  6. IRINOTECAN [Suspect]
     Active Substance: IRINOTECAN
     Indication: ASTROCYTOMA, LOW GRADE
     Dosage: UNK
     Route: 065
  7. EVEROLIMUS. [Suspect]
     Active Substance: EVEROLIMUS
     Indication: ASTROCYTOMA, LOW GRADE
     Dosage: UNK
     Route: 065
  8. CYCLOPHOSPHAMIDE. [Suspect]
     Active Substance: CYCLOPHOSPHAMIDE
     Indication: ASTROCYTOMA, LOW GRADE
     Dosage: UNK
     Route: 065
  9. ETOPOSIDE. [Suspect]
     Active Substance: ETOPOSIDE
     Indication: ASTROCYTOMA, LOW GRADE
     Dosage: UNK
     Route: 065

REACTIONS (2)
  - Malignant neoplasm progression [Recovering/Resolving]
  - Metastases to meninges [Recovering/Resolving]
